FAERS Safety Report 9806059 (Version 2)
Quarter: 2014Q1

REPORT INFORMATION
  Report Type: Spontaneous
  Country: GB (occurrence: GB)
  Receive Date: 20140109
  Receipt Date: 20140306
  Transmission Date: 20141002
  Serious: Yes (Death)
  Sender: FDA-Public Use
  Company Number: PHFR2014GB000540

PATIENT
  Age: 31 Year
  Sex: Male

DRUGS (2)
  1. CLOZARIL [Suspect]
     Indication: SCHIZOPHRENIA
     Dosage: UNK
     Route: 048
     Dates: start: 20030312
  2. CLOZARIL [Suspect]
     Dosage: 300 MG, UNK
     Route: 048

REACTIONS (1)
  - Death [Fatal]
